FAERS Safety Report 15811187 (Version 1)
Quarter: 2019Q1

REPORT INFORMATION
  Report Type: Report from Study
  Country: US (occurrence: US)
  Receive Date: 20190111
  Receipt Date: 20190111
  Transmission Date: 20190417
  Serious: Yes (Hospitalization)
  Sender: FDA-Public Use
  Company Number: US-HORIZON-KRY-0012-2019

PATIENT
  Age: 71 Year
  Sex: Female

DRUGS (2)
  1. KRYSTEXXA [Suspect]
     Active Substance: PEGLOTICASE
     Indication: GOUTY TOPHUS
     Dosage: 8 MG EVERY 2 WEEKS
     Dates: start: 20181129, end: 20181129
  2. COLCHICINE. [Concomitant]
     Active Substance: COLCHICINE

REACTIONS (4)
  - Wheezing [Unknown]
  - Cardiac failure congestive [Unknown]
  - Oedema peripheral [Recovering/Resolving]
  - Dyspnoea [Unknown]

NARRATIVE: CASE EVENT DATE: 20181130
